FAERS Safety Report 19202688 (Version 2)
Quarter: 2021Q2

REPORT INFORMATION
  Report Type: Report from Study
  Country: JP (occurrence: JP)
  Receive Date: 20210430
  Receipt Date: 20210528
  Transmission Date: 20210717
  Serious: Yes (Other)
  Sender: FDA-Public Use
  Company Number: JP-GLAXOSMITHKLINE-JP2021GSK093579

PATIENT

DRUGS (2)
  1. ACYCLOVIR. [Suspect]
     Active Substance: ACYCLOVIR
     Indication: VARICELLA ZOSTER VIRUS INFECTION
     Dosage: UNK
  2. PREDNISOLONE. [Suspect]
     Active Substance: PREDNISOLONE
     Indication: VARICELLA ZOSTER VIRUS INFECTION
     Dosage: UNK
     Route: 048

REACTIONS (4)
  - Necrotising retinitis [Unknown]
  - Pathogen resistance [Unknown]
  - Drug resistance [Unknown]
  - Therapy non-responder [Unknown]
